FAERS Safety Report 10102057 (Version 1)
Quarter: 2014Q2

REPORT INFORMATION
  Report Type: Spontaneous
  Country: US (occurrence: None)
  Receive Date: 20140422
  Receipt Date: 20140422
  Transmission Date: 20141212
  Serious: Yes (Other)
  Sender: FDA-Public Use
  Company Number: AUR-APL-2014-04754

PATIENT
  Age: 75 Year
  Sex: Female

DRUGS (7)
  1. CLOPIDOGREL [Suspect]
     Indication: PRODUCT USED FOR UNKNOWN INDICATION
  2. ESOMEPRAZOLE (ESOMEPRAZOLE) [Concomitant]
  3. ROSUVASTATIN (ROSUVASTATIN) [Concomitant]
  4. LEVOTHYROXINE (LEVOTHYROXINE) [Concomitant]
  5. LORTAB (LORATAB /01444401/) [Concomitant]
  6. PREGAMBLIN (PREGAMBLIN) [Concomitant]
  7. RISEDRONATE (RISESDRONATE SODIUM) [Concomitant]

REACTIONS (7)
  - Hepatotoxicity [None]
  - Nausea [None]
  - Vomiting [None]
  - Pyrexia [None]
  - Cholestasis [None]
  - Anaemia [None]
  - Thrombocytopenia [None]
